FAERS Safety Report 19445472 (Version 4)
Quarter: 2021Q3

REPORT INFORMATION
  Report Type: Report from Study
  Country: None (occurrence: US)
  Receive Date: 20210622
  Receipt Date: 20210707
  Transmission Date: 20211014
  Serious: Yes (Other)
  Sender: FDA-Public Use
  Company Number: US-ABBVIE-21K-163-3948328-00

PATIENT
  Age: 67 Year
  Sex: Male

DRUGS (2)
  1. VENCLEXTA [Suspect]
     Active Substance: VENETOCLAX
     Indication: PRODUCT USED FOR UNKNOWN INDICATION
     Route: 048
  2. VENCLEXTA [Suspect]
     Active Substance: VENETOCLAX
     Route: 048

REACTIONS (12)
  - Red blood cell count decreased [Unknown]
  - Joint swelling [Unknown]
  - Peripheral swelling [Unknown]
  - Dizziness [Unknown]
  - Dyspnoea [Unknown]
  - Platelet count decreased [Unknown]
  - Nausea [Unknown]
  - Constipation [Unknown]
  - Mobility decreased [Unknown]
  - Fatigue [Unknown]
  - Vomiting [Unknown]
  - Diarrhoea [Unknown]

NARRATIVE: CASE EVENT DATE: 202106
